FAERS Safety Report 13659254 (Version 7)
Quarter: 2018Q1

REPORT INFORMATION
  Report Type: Report from Study
  Country: US (occurrence: US)
  Receive Date: 20170616
  Receipt Date: 20180313
  Transmission Date: 20180508
  Serious: Yes (Hospitalization, Other)
  Sender: FDA-Public Use
  Company Number: US-JNJFOC-20170603926

PATIENT
  Age: 70 Year
  Sex: Female

DRUGS (19)
  1. SINGULAIR [Concomitant]
     Active Substance: MONTELUKAST SODIUM
  2. VIREAD [Concomitant]
     Active Substance: TENOFOVIR DISOPROXIL FUMARATE
  3. PROTONIX [Concomitant]
     Active Substance: PANTOPRAZOLE SODIUM
  4. ATIVAN [Concomitant]
     Active Substance: LORAZEPAM
  5. IMBRUVICA [Suspect]
     Active Substance: IBRUTINIB
     Indication: CHRONIC LYMPHOCYTIC LEUKAEMIA
     Route: 048
     Dates: start: 20141118, end: 201705
  6. EVISTA [Concomitant]
     Active Substance: RALOXIFENE HYDROCHLORIDE
  7. ALBUTEROL. [Concomitant]
     Active Substance: ALBUTEROL
  8. CYCLOBENZAPRINE. [Concomitant]
     Active Substance: CYCLOBENZAPRINE
  9. LISINOPRIL. [Concomitant]
     Active Substance: LISINOPRIL
  10. LIPITOR [Concomitant]
     Active Substance: ATORVASTATIN CALCIUM
  11. FUROSEMIDE. [Concomitant]
     Active Substance: FUROSEMIDE
  12. NORCO [Concomitant]
     Active Substance: ACETAMINOPHEN\HYDROCODONE BITARTRATE
  13. IMBRUVICA [Suspect]
     Active Substance: IBRUTINIB
     Indication: CHRONIC LYMPHOCYTIC LEUKAEMIA
     Route: 048
     Dates: start: 20161129, end: 201705
  14. IMBRUVICA [Suspect]
     Active Substance: IBRUTINIB
     Indication: CHRONIC LYMPHOCYTIC LEUKAEMIA
     Route: 048
     Dates: start: 20140725
  15. ZYRTEC [Concomitant]
     Active Substance: CETIRIZINE HYDROCHLORIDE
  16. PAXIL [Concomitant]
     Active Substance: PAROXETINE HYDROCHLORIDE
  17. METFORMIN [Concomitant]
     Active Substance: METFORMIN HYDROCHLORIDE
  18. PREDNISOLONE. [Concomitant]
     Active Substance: PREDNISOLONE
  19. IMBRUVICA [Suspect]
     Active Substance: IBRUTINIB
     Indication: CHRONIC LYMPHOCYTIC LEUKAEMIA
     Route: 048
     Dates: start: 20140715, end: 20170526

REACTIONS (11)
  - Cardio-respiratory arrest [Unknown]
  - Heart valve incompetence [Unknown]
  - Fatigue [Unknown]
  - Cardiac failure congestive [Unknown]
  - Post procedural haemorrhage [Unknown]
  - Pulmonary haemorrhage [Unknown]
  - Pulmonary mass [Not Recovered/Not Resolved]
  - Herpes zoster [Not Recovered/Not Resolved]
  - Pulmonary oedema [Unknown]
  - Hallucination [Unknown]
  - Pain [Unknown]

NARRATIVE: CASE EVENT DATE: 2017
